FAERS Safety Report 18664770 (Version 7)
Quarter: 2023Q2

REPORT INFORMATION
  Report Type: Report from Study
  Country: IL (occurrence: IL)
  Receive Date: 20201225
  Receipt Date: 20230417
  Transmission Date: 20230721
  Serious: Yes (Death, Hospitalization)
  Sender: FDA-Public Use
  Company Number: IL-ABBVIE-20K-082-3704829-00

PATIENT
  Age: 73 Year
  Sex: Male
  Weight: 67 kg

DRUGS (38)
  1. VENCLEXTA [Suspect]
     Active Substance: VENETOCLAX
     Indication: Acute myeloid leukaemia
     Dosage: 100 MILLIGRAM
     Route: 048
     Dates: start: 20201012, end: 20201013
  2. VENCLEXTA [Suspect]
     Active Substance: VENETOCLAX
     Indication: Acute myeloid leukaemia
     Dosage: 200 MILLIGRAM
     Route: 048
     Dates: start: 20201014, end: 20201014
  3. VENCLEXTA [Suspect]
     Active Substance: VENETOCLAX
     Indication: Acute myeloid leukaemia
     Dosage: 400 MILLIGRAM, DURATION TEXT: INTERRUPTION :COUNT RECOVERY
     Route: 048
     Dates: start: 20201015, end: 20201110
  4. VENCLEXTA [Suspect]
     Active Substance: VENETOCLAX
     Indication: Acute myeloid leukaemia
     Dosage: 400 MILLIGRAM, ?DURATION TEXT: DISCONTINUATION-DEATH OF THE PATIENT
     Route: 048
     Dates: start: 20201129, end: 20201217
  5. AZACITIDINE [Suspect]
     Active Substance: AZACITIDINE
     Indication: Acute myeloid leukaemia
     Dosage: DURATION TEXT: CYCLE 1
     Route: 058
     Dates: start: 20201012, end: 20201016
  6. AZACITIDINE [Suspect]
     Active Substance: AZACITIDINE
     Indication: Acute myeloid leukaemia
     Dosage: DURATION TEXT: CYCLE 2
     Route: 058
     Dates: start: 20201206, end: 20201208
  7. AZACITIDINE [Suspect]
     Active Substance: AZACITIDINE
     Indication: Acute myeloid leukaemia
     Dosage: DURATION TEXT: CYCLE 2
     Route: 058
     Dates: start: 20201129, end: 20201202
  8. AZACITIDINE [Suspect]
     Active Substance: AZACITIDINE
     Indication: Acute myeloid leukaemia
     Dosage: DURATION TEXT: CYCLE 1
     Route: 058
     Dates: start: 20201018, end: 20201019
  9. METAMIZOLE [Concomitant]
     Active Substance: METAMIZOLE
     Indication: Analgesic therapy
     Dosage: DROP 500MG/ML
     Dates: start: 20201010, end: 20201010
  10. BETACORTEN [Concomitant]
     Indication: Product used for unknown indication
     Dosage: SCALP SOLUTION 0.1%
     Route: 061
     Dates: start: 20201010, end: 20201015
  11. Avilac [Concomitant]
     Indication: Product used for unknown indication
     Dosage: 670MG/ML
     Dates: start: 20201013
  12. FASTURTEC [Concomitant]
     Active Substance: RASBURICASE
     Indication: Product used for unknown indication
     Dosage: 29M/7.5MG
     Route: 042
     Dates: start: 20201013, end: 20201013
  13. Allopurinol (Alloril) [Concomitant]
     Indication: Blood uric acid decreased
     Route: 065
  14. Allopurinol (Alloril) [Concomitant]
     Indication: Blood uric acid decreased
     Route: 065
     Dates: start: 20190317
  15. Allopurinol (Alloril) [Concomitant]
     Indication: Blood uric acid decreased
     Route: 065
     Dates: start: 20201010, end: 20201012
  16. Allopurinol (Alloril) [Concomitant]
     Indication: Blood uric acid decreased
     Route: 065
     Dates: start: 20201013, end: 20201016
  17. ASPIRIN [Concomitant]
     Active Substance: ASPIRIN
     Indication: Prophylaxis
     Route: 048
     Dates: start: 20180708
  18. HYDROXYETHYLCELLULOSE [Concomitant]
     Indication: Dry eye
     Dates: start: 20190214
  19. COSMETICS [Concomitant]
     Active Substance: COSMETICS
     Indication: Product used for unknown indication
     Route: 061
     Dates: end: 20201015
  20. VITAMIN D [Concomitant]
     Active Substance: VITAMIN D NOS
     Indication: Prophylaxis
     Dates: start: 20180315
  21. RASBURICASE [Concomitant]
     Active Substance: RASBURICASE
     Indication: Product used for unknown indication
  22. HYDREA [Concomitant]
     Active Substance: HYDROXYUREA
     Indication: Myelodysplastic syndrome
     Dosage: 29/M 500MG
     Route: 065
     Dates: start: 20201010
  23. HYDREA [Concomitant]
     Active Substance: HYDROXYUREA
     Indication: Myelodysplastic syndrome
     Dosage: 29/M 1000MG
     Route: 048
     Dates: start: 20201011, end: 20201012
  24. Aqua [Concomitant]
     Indication: Product used for unknown indication
     Dosage: TOPICAL CREAM
     Dates: start: 20201013
  25. Aqua [Concomitant]
     Indication: Product used for unknown indication
     Dosage: TOPICAL CREAM
     Dates: start: 20201015, end: 20201016
  26. Aqua [Concomitant]
     Indication: Product used for unknown indication
     Dosage: TOPICAL CREAM
     Dates: start: 20201010, end: 20201011
  27. HYDREA [Concomitant]
     Active Substance: HYDROXYUREA
     Indication: Myelodysplastic syndrome
     Dosage: 29/M 500MG
     Dates: start: 20201010
  28. HYDREA [Concomitant]
     Active Substance: HYDROXYUREA
     Indication: Myelodysplastic syndrome
     Dosage: 29/M 1000MG
     Route: 048
     Dates: start: 20201011, end: 20201012
  29. HYDREA [Concomitant]
     Active Substance: HYDROXYUREA
     Indication: Myelodysplastic syndrome
     Dates: start: 20190214
  30. CIPRODEX [Concomitant]
     Active Substance: CIPROFLOXACIN HYDROCHLORIDE\DEXAMETHASONE
     Indication: Product used for unknown indication
     Dosage: FORM STRENGTH: 500 MILLIGRAM
     Dates: start: 20201016
  31. CIPRODEX [Concomitant]
     Active Substance: CIPROFLOXACIN HYDROCHLORIDE\DEXAMETHASONE
     Indication: Product used for unknown indication
     Dosage: FORM STRENGTH: 500 MILLIGRAM
     Route: 048
     Dates: end: 20201015
  32. KAYEXALATE [Concomitant]
     Active Substance: SODIUM POLYSTYRENE SULFONATE
     Indication: Product used for unknown indication
     Dates: start: 20201013
  33. ENSURE [Concomitant]
     Active Substance: AMINO ACIDS\DEXTROSE\ELECTROLYTES NOS\SOYBEAN OIL\VITAMINS
     Indication: Product used for unknown indication
     Dosage: CHOCOLATE
     Route: 048
     Dates: start: 20201010, end: 20201016
  34. MUPIROCIN [Concomitant]
     Active Substance: MUPIROCIN
     Indication: Product used for unknown indication
     Dosage: TEVA 2%
     Route: 061
     Dates: start: 20201013
  35. ZOVIRAX [Concomitant]
     Active Substance: ACYCLOVIR
     Indication: Product used for unknown indication
     Dosage: 2000 MILLIGRAM, FORM STRENGTH: 400 MILLIGRAM
     Route: 065
     Dates: start: 20201012, end: 20201012
  36. ZOVIRAX [Concomitant]
     Active Substance: ACYCLOVIR
     Indication: Product used for unknown indication
     Dosage: 800 MILLIGRAM,FORM STRENGTH: 400 MILLIGRAM
     Route: 065
     Dates: start: 20201010, end: 20201010
  37. ZOVIRAX [Concomitant]
     Active Substance: ACYCLOVIR
     Indication: Product used for unknown indication
     Dosage: 1600 MILLIGRAM, FORM STRENGTH: 400 MILLIGRAM
     Route: 065
     Dates: start: 20201011, end: 20201011
  38. ZOVIRAX [Concomitant]
     Active Substance: ACYCLOVIR
     Indication: Product used for unknown indication
     Dosage: 1600 MILLIGRAM, FORM STRENGTH: 400 MILLIGRAM, START DATE TEXT: 1
     Route: 065
     Dates: end: 20201013

REACTIONS (4)
  - Death [Fatal]
  - Cytopenia [Fatal]
  - Tumour lysis syndrome [Recovered/Resolved]
  - Syncope [Recovered/Resolved]

NARRATIVE: CASE EVENT DATE: 20201013
